FAERS Safety Report 9257948 (Version 1)
Quarter: 2013Q2

REPORT INFORMATION
  Report Type: Report from Study
  Country: AR (occurrence: AR)
  Receive Date: 20130426
  Receipt Date: 20130426
  Transmission Date: 20140414
  Serious: Yes (Other)
  Sender: FDA-Public Use
  Company Number: PHHY2013AR041336

PATIENT
  Sex: Male

DRUGS (2)
  1. EXFORGE [Suspect]
     Indication: HYPERTENSION
     Dosage: 1 DF (80/5MG) DAILY
     Route: 048
     Dates: start: 2011, end: 2012
  2. VIAGRA [Concomitant]
     Dosage: UNK UKN, UNK

REACTIONS (3)
  - Libido decreased [Recovered/Resolved]
  - Erectile dysfunction [Recovered/Resolved]
  - Blood pressure diastolic increased [Recovered/Resolved]
